FAERS Safety Report 10757527 (Version 3)
Quarter: 2015Q2

REPORT INFORMATION
  Report Type: Spontaneous
  Country: US (occurrence: US)
  Receive Date: 20150203
  Receipt Date: 20150526
  Transmission Date: 20150821
  Serious: Yes (Hospitalization, Other)
  Sender: FDA-Public Use
  Company Number: US-BAYER-2015-014692

PATIENT
  Age: 25 Year
  Sex: Female
  Weight: 86 kg

DRUGS (1)
  1. MIRENA [Suspect]
     Active Substance: LEVONORGESTREL
     Indication: CONTRACEPTION
     Dosage: 20 MCG/24HR, CONT
     Route: 015
     Dates: start: 20120815, end: 20130308

REACTIONS (11)
  - Uterine perforation [None]
  - Haematochezia [None]
  - Abdominal pain lower [None]
  - Device issue [None]
  - Menorrhagia [None]
  - Vaginal haemorrhage [None]
  - Painful defaecation [None]
  - Pain [None]
  - Device dislocation [None]
  - Injury [None]
  - Dyspareunia [None]

NARRATIVE: CASE EVENT DATE: 201208
